FAERS Safety Report 8824091 (Version 1)
Quarter: 2012Q4

REPORT INFORMATION
  Report Type: 
  Country: US (occurrence: US)
  Receive Date: 20121003
  Receipt Date: 20121003
  Transmission Date: 20130627
  Serious: Yes (Hospitalization, Other)
  Sender: FDA-Public Use
  Company Number: US-ROCHE-1131377

PATIENT
  Sex: Male

DRUGS (1)
  1. RITUXAN [Suspect]
     Indication: WALDENSTROM^S MACROGLOBULINAEMIA
     Route: 065

REACTIONS (6)
  - Blood creatinine [Unknown]
  - Epistaxis [Unknown]
  - Abdominal pain [Unknown]
  - Malaise [Unknown]
  - Disease progression [Unknown]
  - Hyperaemia [Unknown]
